FAERS Safety Report 16350592 (Version 19)
Quarter: 2023Q1

REPORT INFORMATION
  Report Type: Report from Study
  Country: JP (occurrence: JP)
  Receive Date: 20190524
  Receipt Date: 20230215
  Transmission Date: 20230418
  Serious: Yes (Death, Hospitalization, Other)
  Sender: FDA-Public Use
  Company Number: JP-ONO-2019JP017713

PATIENT
  Age: 74 Year
  Sex: Female
  Weight: 47.1 kg

DRUGS (23)
  1. ETELCALCETIDE [Suspect]
     Active Substance: ETELCALCETIDE
     Indication: Hyperparathyroidism secondary
     Dosage: 5 MILLIGRAM, QWK
     Route: 010
     Dates: start: 20181006
  2. DARBEPOETIN ALFA [Concomitant]
     Active Substance: DARBEPOETIN ALFA
     Dosage: 40 MICROGRAM, QWK
     Route: 051
     Dates: end: 20190406
  3. DARBEPOETIN ALFA [Concomitant]
     Active Substance: DARBEPOETIN ALFA
     Dosage: 10 MICROGRAM, QWK
     Route: 051
     Dates: start: 20190413, end: 20190817
  4. DARBEPOETIN ALFA [Concomitant]
     Active Substance: DARBEPOETIN ALFA
     Dosage: 15 MICROGRAM, QWK
     Route: 051
     Dates: start: 20190907, end: 20190921
  5. DARBEPOETIN ALFA [Concomitant]
     Active Substance: DARBEPOETIN ALFA
     Dosage: 15 MICROGRAM, QWK
     Route: 065
     Dates: start: 20190928, end: 20191123
  6. DARBEPOETIN ALFA [Concomitant]
     Active Substance: DARBEPOETIN ALFA
     Dosage: 20 MICROGRAM, QWK
     Route: 065
     Dates: start: 20191130, end: 20200111
  7. DARBEPOETIN ALFA [Concomitant]
     Active Substance: DARBEPOETIN ALFA
     Dosage: 30 MICROGRAM, QWK
     Route: 065
     Dates: start: 20200118, end: 20200523
  8. DARBEPOETIN ALFA [Concomitant]
     Active Substance: DARBEPOETIN ALFA
     Dosage: 40 MICROGRAM, QWK
     Route: 065
     Dates: start: 20200530, end: 20221119
  9. OXAROL MARUHO [Concomitant]
     Dosage: 2.5 MICROGRAM, Q56H
     Route: 042
     Dates: end: 20180608
  10. OXAROL MARUHO [Concomitant]
     Dosage: 5 MICROGRAM, Q56H
     Route: 042
     Dates: start: 20180609, end: 20180906
  11. OXAROL MARUHO [Concomitant]
     Dosage: 10 MICROGRAM, Q56H
     Route: 042
     Dates: start: 20180911, end: 20190124
  12. OXAROL MARUHO [Concomitant]
     Dosage: 5 MICROGRAM, Q56H
     Route: 042
     Dates: start: 20190126, end: 20190905
  13. OXAROL MARUHO [Concomitant]
     Dosage: 2.5 MICROGRAM, Q56H
     Route: 042
     Dates: start: 20190907, end: 20200326
  14. OXAROL MARUHO [Concomitant]
     Dosage: 5 MICROGRAM, Q56H
     Route: 042
     Dates: start: 20200328, end: 20201008
  15. OXAROL MARUHO [Concomitant]
     Dosage: 2.5 MICROGRAM, Q56H
     Route: 042
     Dates: start: 20201010, end: 20201201
  16. OXAROL MARUHO [Concomitant]
     Dosage: 2.5 MICROGRAM, Q56H
     Route: 042
     Dates: start: 20210515, end: 20210622
  17. OXAROL MARUHO [Concomitant]
     Dosage: 5.0 MICROGRAM, Q56H
     Route: 042
     Dates: start: 20210624, end: 20210805
  18. OXAROL MARUHO [Concomitant]
     Dosage: 2.5 MICROGRAM, Q56H
     Route: 042
     Dates: start: 20210807, end: 20220113
  19. OXAROL MARUHO [Concomitant]
     Dosage: 2.5 MICROGRAM, Q84H
     Route: 042
     Dates: start: 20220219, end: 20220301
  20. OXAROL MARUHO [Concomitant]
     Dosage: 5.0 MICROGRAM, Q56H
     Route: 042
     Dates: start: 20220421, end: 20220519
  21. OXAROL MARUHO [Concomitant]
     Dosage: 2.5 MICROGRAM, Q56H
     Route: 042
     Dates: start: 20220521, end: 20221126
  22. FOSRENOL [Concomitant]
     Active Substance: LANTHANUM CARBONATE
     Dosage: 750 MG, EVERYDAY
     Route: 065
     Dates: end: 20190228
  23. IRON SUCROSE [Concomitant]
     Active Substance: IRON SUCROSE
     Dosage: 40 MILLIGRAM, QWK
     Route: 065
     Dates: end: 20221018

REACTIONS (6)
  - Device related infection [Fatal]
  - Gastroenteritis [Recovered/Resolved]
  - Shunt occlusion [Recovered/Resolved]
  - Skin exfoliation [Recovered/Resolved]
  - Steal syndrome [Recovering/Resolving]
  - Shunt stenosis [Recovered/Resolved]

NARRATIVE: CASE EVENT DATE: 20181124
